FAERS Safety Report 6911667-8 (Version None)
Quarter: 2010Q3

REPORT INFORMATION
  Report Type: 
  Country: None (occurrence: None)
  Receive Date: 20100806
  Receipt Date: 20100730
  Transmission Date: 20110219
  Serious: Yes (Hospitalization)
  Sender: FDA-Public Use
  Company Number: PHHO2010FR11603

PATIENT
  Sex: Male
  Weight: 86.5 kg

DRUGS (4)
  1. NEORAL [Suspect]
     Indication: RENAL TRANSPLANT
     Dosage: 250 MG, BID
     Route: 048
     Dates: start: 20100722, end: 20100730
  2. CELLCEPT [Concomitant]
     Indication: RENAL TRANSPLANT
     Dosage: 1.5 G, BID
     Route: 048
     Dates: start: 20100721
  3. CORTANCYL [Concomitant]
     Indication: RENAL TRANSPLANT
     Dosage: 60 MG, DAILY
     Route: 042
     Dates: start: 20100728
  4. SOLU-MEDROL [Concomitant]
     Dosage: UNK
     Dates: start: 20100721, end: 20100728

REACTIONS (3)
  - COMPLICATIONS OF TRANSPLANTED KIDNEY [None]
  - OVERDOSE [None]
  - POLYURIA [None]
